FAERS Safety Report 9651955 (Version 3)
Quarter: 2013Q4

REPORT INFORMATION
  Report Type: Spontaneous
  Country: CN (occurrence: CN)
  Receive Date: 20131029
  Receipt Date: 20131105
  Transmission Date: 20140711
  Serious: Yes (Hospitalization)
  Sender: FDA-Public Use
  Company Number: CN-ASTRAZENECA-2013SE71650

PATIENT
  Sex: Female

DRUGS (5)
  1. BETALOC ZOK [Suspect]
     Indication: CORONARY ARTERY DISEASE
     Route: 048
  2. KANGXIN [Suspect]
     Route: 048
  3. DILTIAZEM [Suspect]
  4. TRIMETAZIDINE [Suspect]
  5. OTHER DRUG [Concomitant]

REACTIONS (2)
  - Deafness [Recovering/Resolving]
  - Tinnitus [Recovering/Resolving]
